FAERS Safety Report 6240034-8 (Version None)
Quarter: 2009Q2

REPORT INFORMATION
  Report Type: 
  Country: None (occurrence: None)
  Receive Date: 20090623
  Receipt Date: 20090617
  Transmission Date: 20091009
  Serious: No
  Sender: FDA-Public Use
  Company Number: US-B.I. PHARMACEUTICALS,INC./RIDGEFIELD-2009-BP-07421BP

PATIENT
  Age: 79 Year
  Sex: Female

DRUGS (2)
  1. SPIRIVA [Suspect]
     Indication: EMPHYSEMA
     Dates: start: 20090301
  2. OXYGEN [Concomitant]
     Indication: EMPHYSEMA

REACTIONS (1)
  - LARYNGITIS [None]
